FAERS Safety Report 16871219 (Version 1)
Quarter: 2019Q3

REPORT INFORMATION
  Report Type: Spontaneous
  Country: GB (occurrence: GB)
  Receive Date: 20190930
  Receipt Date: 20190930
  Transmission Date: 20191005
  Serious: Yes (Death, Other)
  Sender: FDA-Public Use
  Company Number: GB-AUROBINDO-AUR-APL-2019-062886

PATIENT
  Age: 62 Year
  Sex: Female

DRUGS (6)
  1. CYCLOSPORINE. [Suspect]
     Active Substance: CYCLOSPORINE
     Indication: IMMUNOSUPPRESSION
     Dosage: 16 MILLIGRAM/KILOGRAM, ONCE A DAY, 4?8 MG/KG/D IN TWO DIVIDED DOSES
     Route: 065
  2. LEFLUNOMIDE. [Suspect]
     Active Substance: LEFLUNOMIDE
     Indication: CYTOMEGALOVIRUS INFECTION
     Dosage: 40 MILLIGRAM, ONCE A DAY
     Route: 065
  3. AZATHIOPRINE. [Suspect]
     Active Substance: AZATHIOPRINE
     Indication: IMMUNOSUPPRESSION
     Dosage: 2 MILLIGRAM/KILOGRAM, ONCE A DAY, 1?2 MG/KG/D
     Route: 048
  4. CYTOTECT CP [Suspect]
     Active Substance: HUMAN CYTOMEGALOVIRUS IMMUNE GLOBULIN
     Indication: CYTOMEGALOVIRUS INFECTION
     Dosage: UNK UNK, EVERY WEEK, 2?3 ML/KG,  EXPRESSED IN LOG10 COPIES/ML: 4.6?5.2: WEEKLY
     Route: 065
  5. VALGANCICLOVIR. [Suspect]
     Active Substance: VALGANCICLOVIR
     Indication: TRANSPLANT REJECTION
     Dosage: 900 MILLIGRAM, ONCE A DAY, 450-900 MG/DAY
     Route: 065
  6. GANCICLOVIR. [Suspect]
     Active Substance: GANCICLOVIR
     Indication: CYTOMEGALOVIRUS INFECTION
     Dosage: 10 MILLIGRAM/KILOGRAM, ONCE A DAY, INTRAVENOUS GCV (5 MG/KG B.I.D)
     Route: 042

REACTIONS (6)
  - Complications of transplanted lung [Fatal]
  - Cytomegalovirus infection [Unknown]
  - Oedema peripheral [Unknown]
  - Renal impairment [Unknown]
  - Pathogen resistance [Fatal]
  - Fluid retention [Unknown]
